FAERS Safety Report 7920055-7 (Version None)
Quarter: 2011Q4

REPORT INFORMATION
  Report Type: 
  Country: None (occurrence: None)
  Receive Date: 20111115
  Receipt Date: 20111102
  Transmission Date: 20120403
  Serious: Yes (Other)
  Sender: FDA-Public Use
  Company Number: 1000025408

PATIENT
  Age: 30 Year
  Sex: Female

DRUGS (1)
  1. DINOPROSTONE (DINOPROSTONE) (VAGINAL INSERT) [Suspect]
     Indication: LABOUR INDUCTION
     Dosage: 10 MG (10 MG), VAGINAL
     Route: 067
     Dates: start: 20110101, end: 20110101

REACTIONS (2)
  - MATERNAL DRUGS AFFECTING FOETUS [None]
  - PREMATURE SEPARATION OF PLACENTA [None]
